FAERS Safety Report 19616912 (Version 1)
Quarter: 2021Q3

REPORT INFORMATION
  Report Type: Spontaneous
  Country: US (occurrence: US)
  Receive Date: 20210727
  Receipt Date: 20210727
  Transmission Date: 20211014
  Serious: No
  Sender: FDA-Public Use
  Company Number: US-ABBVIE-21K-163-3999272-00

PATIENT
  Sex: Male

DRUGS (2)
  1. SYNTHROID [Suspect]
     Active Substance: LEVOTHYROXINE SODIUM
     Route: 048
  2. SYNTHROID [Suspect]
     Active Substance: LEVOTHYROXINE SODIUM
     Indication: PRODUCT USED FOR UNKNOWN INDICATION
     Route: 048

REACTIONS (10)
  - Asthenia [Unknown]
  - Feeling hot [Unknown]
  - Heart rate increased [Unknown]
  - Tremor [Unknown]
  - COVID-19 [Unknown]
  - Inappropriate schedule of product administration [Unknown]
  - Hyperhidrosis [Unknown]
  - Irritability [Unknown]
  - Blood thyroid stimulating hormone increased [Unknown]
  - Feeling jittery [Unknown]

NARRATIVE: CASE EVENT DATE: 2020
